FAERS Safety Report 18442452 (Version 1)
Quarter: 2020Q4

REPORT INFORMATION
  Report Type: Spontaneous
  Country: US (occurrence: US)
  Receive Date: 20201029
  Receipt Date: 20201029
  Transmission Date: 20210114
  Serious: Yes (Other)
  Sender: FDA-Public Use
  Company Number: US-SA-2020SA299777

PATIENT

DRUGS (3)
  1. AMBIEN [Suspect]
     Active Substance: ZOLPIDEM TARTRATE
     Dosage: 10 MG, INCREASED
  2. AMBIEN [Suspect]
     Active Substance: ZOLPIDEM TARTRATE
     Indication: INSOMNIA
     Dosage: 5 MG
  3. AMBIEN [Suspect]
     Active Substance: ZOLPIDEM TARTRATE
     Dosage: 5 MG, DECREASED 8 WEEKS AGO

REACTIONS (10)
  - Depressed level of consciousness [Unknown]
  - Vertigo [Unknown]
  - Electrolyte imbalance [Unknown]
  - Treatment noncompliance [Unknown]
  - Drug withdrawal syndrome [Unknown]
  - Dysarthria [Unknown]
  - Anxiety [Unknown]
  - Product use issue [Unknown]
  - Speech disorder [Unknown]
  - Neurological symptom [Unknown]
